FAERS Safety Report 26080778 (Version 2)
Quarter: 2025Q4

REPORT INFORMATION
  Report Type: Spontaneous
  Country: US (occurrence: US)
  Receive Date: 20251124
  Receipt Date: 20251125
  Transmission Date: 20260118
  Serious: Yes (Death, Hospitalization)
  Sender: BIOGEN
  Company Number: US-BIOGEN-2091995

PATIENT
  Age: 59 Year
  Sex: Male

DRUGS (2)
  1. SKYCLARYS [Suspect]
     Active Substance: OMAVELOXOLONE
     Indication: Product used for unknown indication
     Dates: start: 20250917, end: 20251113
  2. SKYCLARYS [Suspect]
     Active Substance: OMAVELOXOLONE

REACTIONS (3)
  - Death [Fatal]
  - Urinary tract infection [Unknown]
  - Secretion discharge [Unknown]

NARRATIVE: CASE EVENT DATE: 20251113
